FAERS Safety Report 8377520-0 (Version None)
Quarter: 2012Q2

REPORT INFORMATION
  Report Type: 
  Country: None (occurrence: None)
  Receive Date: 20120522
  Receipt Date: 20120510
  Transmission Date: 20120825
  Serious: Yes (Hospitalization)
  Sender: FDA-Public Use
  Company Number: AU-ROCHE-1068050

PATIENT
  Age: 73 Year
  Sex: Male
  Weight: 86.7 kg

DRUGS (12)
  1. VEMURAFENIB [Suspect]
     Indication: MALIGNANT MELANOMA
     Dosage: DATE OF LAST DOSE PRIOR TO EVENT IS ON 29/APR/2012
     Route: 048
     Dates: start: 20120312
  2. ISOPTIN SR [Concomitant]
     Dates: start: 19710101, end: 20120430
  3. LACTULOSE [Concomitant]
     Dates: start: 20111110
  4. COLOXYL + SENNA [Concomitant]
     Dates: start: 20111110
  5. OXYCONTIN [Concomitant]
     Dates: start: 20111204
  6. MICARDIS [Concomitant]
     Dates: start: 19710101, end: 20120430
  7. METOCLOPRAMIDE [Concomitant]
     Dates: start: 20111117
  8. PROCHLORPERAZINE [Concomitant]
     Dates: start: 20111208
  9. NYSTATIN LOZENGE [Concomitant]
     Dates: start: 20111208
  10. FLUCONAZOLE [Concomitant]
     Dates: start: 20120207
  11. OMEPRAZOLE [Concomitant]
     Dates: start: 20111123
  12. PRESSIN [Concomitant]
     Dates: start: 19710101, end: 20120430

REACTIONS (3)
  - HYPOTENSION [None]
  - PYREXIA [None]
  - DEHYDRATION [None]
